FAERS Safety Report 24711177 (Version 1)
Quarter: 2024Q4

REPORT INFORMATION
  Report Type: Spontaneous
  Country: GB (occurrence: GB)
  Receive Date: 20241209
  Receipt Date: 20241209
  Transmission Date: 20250115
  Serious: Yes (Disabling)
  Sender: SANDOZ
  Company Number: GB-MHRA-TPP15639519C1223476YC1733313726953

PATIENT
  Age: 77 Year
  Sex: Female
  Weight: 88 kg

DRUGS (19)
  1. AMOXICILLIN\CLAVULANATE POTASSIUM [Suspect]
     Active Substance: AMOXICILLIN\CLAVULANATE POTASSIUM
     Indication: Mastitis
     Dosage: TAKE ONE TABLET THREE TIMES A DAY FOR 10 DAYS, ...
     Route: 065
     Dates: start: 20241128
  2. AMOXICILLIN [Concomitant]
     Active Substance: AMOXICILLIN
     Indication: Product used for unknown indication
     Dosage: TAKE ONE 3 TIMES A DAY AS A STANDBY COURSE
     Route: 065
     Dates: start: 20240215
  3. ANASTROZOLE [Concomitant]
     Active Substance: ANASTROZOLE
     Indication: Product used for unknown indication
     Dosage: TAKE ONE DAILY
     Route: 065
     Dates: start: 20240725
  4. ASPIRIN [Concomitant]
     Active Substance: ASPIRIN
     Indication: Product used for unknown indication
     Dosage: TAKE ONE DAILY
     Route: 065
     Dates: start: 20240215
  5. ATRAUMAN AG [Concomitant]
     Indication: Product used for unknown indication
     Dosage: APPLY TO WOUND
     Route: 065
     Dates: start: 20241028, end: 20241117
  6. BETAMETHASONE VALERATE [Concomitant]
     Active Substance: BETAMETHASONE VALERATE
     Indication: Product used for unknown indication
     Dosage: APPLY TWICE DAILY
     Route: 065
     Dates: start: 20240611
  7. CLARITHROMYCIN [Concomitant]
     Active Substance: CLARITHROMYCIN
     Indication: Product used for unknown indication
     Dosage: TAKE ONE TABLET TWICE A DAY FOR 10 DAYS, TO TREAT INFECTION
     Route: 065
     Dates: start: 20241203
  8. LANOLIN\LIGHT MINERAL OIL\PARAFFIN [Concomitant]
     Active Substance: LANOLIN\LIGHT MINERAL OIL\PARAFFIN
     Indication: Product used for unknown indication
     Dosage: APPLY AS NEEDED
     Route: 065
     Dates: start: 20231219
  9. HYPROMELLOSES [Concomitant]
     Active Substance: HYPROMELLOSES
     Indication: Product used for unknown indication
     Dosage: USE AS DIRECTED
     Route: 065
     Dates: start: 20231023
  10. ISPAGHULA EXTRACT\PSYLLIUM [Concomitant]
     Active Substance: HERBALS\PLANTAGO OVATA SEED\PLANTAGO SEED
     Indication: Product used for unknown indication
     Dosage: USE AS DIRECTED
     Route: 065
     Dates: start: 20240215
  11. LEVOTHYROXINE [Concomitant]
     Active Substance: LEVOTHYROXINE
     Indication: Product used for unknown indication
     Dosage: TAKE ONE  EACH MORNING FOR THYROID (MERCURY PHA...
     Route: 065
     Dates: start: 20231219
  12. LOPERAMIDE [Concomitant]
     Active Substance: LOPERAMIDE
     Indication: Product used for unknown indication
     Dosage: ONE AS NEEDED (MAX 8 CAPS IN 24HRS)
     Route: 065
     Dates: start: 20241203
  13. METRONIDAZOLE [Concomitant]
     Active Substance: METRONIDAZOLE
     Indication: Product used for unknown indication
     Dosage: TAKE ONE TABLET THREE TIMES DAILY FOR 10 DAYS
     Route: 065
     Dates: start: 20241203
  14. MOMETASONE [Concomitant]
     Active Substance: MOMETASONE
     Indication: Product used for unknown indication
     Dosage: APPLY DAILY
     Route: 065
     Dates: start: 20240215
  15. NYSTATIN [Concomitant]
     Active Substance: NYSTATIN
     Indication: Product used for unknown indication
     Dosage: 1ML  FOUR TIMES A DAY FOR 10 DAYS
     Route: 065
  16. DEVICE\POLYURETHANE [Concomitant]
     Active Substance: DEVICE\POLYURETHANE
     Indication: Product used for unknown indication
     Dosage: APPLY TO WOUND
     Route: 065
     Dates: start: 20241028, end: 20241117
  17. ESTRIOL [Concomitant]
     Active Substance: ESTRIOL
     Indication: Product used for unknown indication
     Dosage: APPLY AT NIGHT
     Route: 065
     Dates: start: 20220516
  18. ACETAMINOPHEN [Concomitant]
     Active Substance: ACETAMINOPHEN
     Indication: Product used for unknown indication
     Dosage: TAKE 1 OR 2 4 TIMES/DAY
     Route: 065
     Dates: start: 20220107
  19. PROCHLORPERAZINE [Concomitant]
     Active Substance: PROCHLORPERAZINE
     Indication: Product used for unknown indication
     Dosage: USE ONE TO TWO TWICE DAILY AS NEEDED FOR NAUSEA...
     Route: 065
     Dates: start: 20241203

REACTIONS (7)
  - Productive cough [Not Recovered/Not Resolved]
  - Nasal congestion [Unknown]
  - Asthenia [Unknown]
  - Oral candidiasis [Unknown]
  - Vomiting [Not Recovered/Not Resolved]
  - Headache [Unknown]
  - Diarrhoea [Not Recovered/Not Resolved]
